FAERS Safety Report 8576575-8 (Version None)
Quarter: 2012Q3

REPORT INFORMATION
  Report Type: 
  Country: None (occurrence: None)
  Receive Date: 20120807
  Receipt Date: 20120723
  Transmission Date: 20120928
  Serious: Yes (Other)
  Sender: FDA-Public Use
  Company Number: GB-WATSON-2012-13140

PATIENT
  Age: 55 Year
  Sex: Male

DRUGS (3)
  1. METRONIDAZOLE [Suspect]
     Indication: TOOTH ABSCESS
     Dosage: UNK
     Route: 048
     Dates: start: 20120611, end: 20120616
  2. AMOXICILLIN [Suspect]
     Indication: TOOTH ABSCESS
     Dosage: UNK
     Route: 048
     Dates: start: 20120611, end: 20120616
  3. OMEPRAZOLE [Concomitant]
     Indication: DYSPEPSIA
     Dosage: 20 MG, UNKNOWN
     Route: 048
     Dates: start: 20111021

REACTIONS (1)
  - CLOSTRIDIAL INFECTION [None]
